FAERS Safety Report 25895321 (Version 1)
Quarter: 2025Q4

REPORT INFORMATION
  Report Type: Report from Study
  Country: EU (occurrence: EU)
  Receive Date: 20251008
  Receipt Date: 20251008
  Transmission Date: 20260117
  Serious: No
  Sender: IPSEN BIOPHARMACEUTICALS, INC.
  Company Number: EU-IPSEN Group, Research and Development-2025-24668

PATIENT
  Sex: Female

DRUGS (1)
  1. ODEVIXIBAT [Suspect]
     Active Substance: ODEVIXIBAT
     Indication: Alagille syndrome

REACTIONS (1)
  - Hepatic enzyme increased [Unknown]
